FAERS Safety Report 11272657 (Version 1)
Quarter: 2015Q3

REPORT INFORMATION
  Report Type: Spontaneous
  Country: US (occurrence: None)
  Receive Date: 20150714
  Receipt Date: 20150714
  Transmission Date: 20151125
  Serious: No
  Sender: FDA-Public Use
  Company Number: None

PATIENT
  Age: 67 Year
  Sex: Female
  Weight: 85.28 kg

DRUGS (7)
  1. NASACORT [Concomitant]
     Active Substance: TRIAMCINOLONE ACETONIDE
  2. CENTRUM [Concomitant]
     Active Substance: VITAMINS
  3. BIOTIN [Concomitant]
     Active Substance: BIOTIN
  4. FISH [Concomitant]
     Active Substance: FISH
  5. VITAMIN D [Concomitant]
     Active Substance: CHOLECALCIFEROL
  6. DULERA [Suspect]
     Active Substance: FORMOTEROL FUMARATE DIHYDRATE\MOMETASONE FUROATE
     Indication: CHRONIC OBSTRUCTIVE PULMONARY DISEASE
     Dosage: 1 UG 2 PUFFS TWICE DAILY
     Route: 048
     Dates: end: 20150619
  7. DARVON [Concomitant]
     Active Substance: PROPOXYPHENE HYDROCHLORIDE

REACTIONS (3)
  - Musculoskeletal disorder [None]
  - Pain in extremity [None]
  - Impaired work ability [None]

NARRATIVE: CASE EVENT DATE: 20150619
